FAERS Safety Report 6493239-5 (Version None)
Quarter: 2009Q4

REPORT INFORMATION
  Report Type: 
  Country: None (occurrence: None)
  Receive Date: 20091209
  Receipt Date: 20091126
  Transmission Date: 20100525
  Serious: Yes (Death)
  Sender: FDA-Public Use
  Company Number: 445649

PATIENT

DRUGS (2)
  1. MORPHINE [Suspect]
     Indication: PAIN
     Dosage: 3 MG, INTRATHECAL
     Route: 037
  2. (OPIOIDS) [Suspect]
     Indication: PAIN

REACTIONS (8)
  - APNOEA [None]
  - DRUG INTERACTION [None]
  - LETHARGY [None]
  - OVERDOSE [None]
  - RESPIRATORY ARREST [None]
  - RESPIRATORY DEPRESSION [None]
  - SNORING [None]
  - SOMNOLENCE [None]
